FAERS Safety Report 8571882-7 (Version None)
Quarter: 2012Q3

REPORT INFORMATION
  Report Type: 
  Country: None (occurrence: None)
  Receive Date: 20120724
  Receipt Date: 20120709
  Transmission Date: 20120928
  Serious: Yes (Death, Hospitalization)
  Sender: FDA-Public Use
  Company Number: US-2012-10932

PATIENT
  Age: 54 Year
  Sex: Male

DRUGS (1)
  1. BUSULFEX [Suspect]
     Dosage: INTRAVENOUS
     Route: 042
     Dates: start: 20120326, end: 20120330

REACTIONS (12)
  - MULTIPLE MYELOMA [None]
  - SEPSIS [None]
  - ASTHENIA [None]
  - DISEASE PROGRESSION [None]
  - TACHYPNOEA [None]
  - DEEP VEIN THROMBOSIS [None]
  - FATIGUE [None]
  - PLEURAL EFFUSION [None]
  - TACHYCARDIA [None]
  - MENTAL STATUS CHANGES [None]
  - RENAL FAILURE [None]
  - HYPOTENSION [None]
